FAERS Safety Report 16475356 (Version 1)
Quarter: 2019Q2

REPORT INFORMATION
  Report Type: Spontaneous
  Country: US (occurrence: US)
  Receive Date: 20190625
  Receipt Date: 20190625
  Transmission Date: 20190711
  Serious: No
  Sender: FDA-Public Use
  Company Number: US-SA-2019SA171982

PATIENT
  Age: 23 Year
  Sex: Female

DRUGS (1)
  1. DUPIXENT [Suspect]
     Active Substance: DUPILUMAB
     Indication: DERMATITIS ATOPIC
     Dosage: 300 MG, QOW(300 MG / 2ML)
     Route: 058
     Dates: start: 20190118

REACTIONS (1)
  - Dermatitis [Not Recovered/Not Resolved]

NARRATIVE: CASE EVENT DATE: 20190524
